FAERS Safety Report 6942302-0 (Version None)
Quarter: 2010Q3

REPORT INFORMATION
  Report Type: 
  Country: None (occurrence: None)
  Receive Date: 20100819
  Receipt Date: 20100812
  Transmission Date: 20110219
  Serious: Yes (Life-Threatening)
  Sender: FDA-Public Use
  Company Number: 2010TJ0142

PATIENT
  Age: 7 Year
  Sex: Male

DRUGS (3)
  1. TWINJECT 0.3 [Suspect]
     Indication: HYPERSENSITIVITY
     Dosage: AS NEEDED
  2. VERAMYST [Concomitant]
  3. ALBUTEROL SULATE [Concomitant]

REACTIONS (1)
  - DEVICE FAILURE [None]
